FAERS Safety Report 15705729 (Version 2)
Quarter: 2019Q1

REPORT INFORMATION
  Report Type: Spontaneous
  Country: None (occurrence: CO)
  Receive Date: 20181210
  Receipt Date: 20190114
  Transmission Date: 20190417
  Serious: Yes (Other)
  Sender: FDA-Public Use
  Company Number: CO-POPULATION COUNCIL, INC.-2059916

PATIENT
  Age: 24 Year
  Sex: Female
  Weight: 93 kg

DRUGS (1)
  1. JADELLE [Suspect]
     Active Substance: LEVONORGESTREL
     Indication: CONTRACEPTION
     Route: 059
     Dates: start: 20161019, end: 20181012

REACTIONS (2)
  - Drug ineffective [None]
  - Ectopic pregnancy under hormonal contraception [Recovered/Resolved]
